FAERS Safety Report 18639376 (Version 1)
Quarter: 2020Q4

REPORT INFORMATION
  Report Type: Spontaneous
  Country: CN (occurrence: CN)
  Receive Date: 20201219
  Receipt Date: 20201219
  Transmission Date: 20210114
  Serious: Yes (Other)
  Sender: FDA-Public Use
  Company Number: CN-UCBSA-2020051644

PATIENT
  Sex: Male
  Weight: 2.3 kg

DRUGS (2)
  1. CIMZIA [Suspect]
     Active Substance: CERTOLIZUMAB PEGOL
     Indication: ANKYLOSING SPONDYLITIS
     Dosage: 200 MILLIGRAM, EV 2 WEEKS(QOW)
     Route: 064
     Dates: start: 202004, end: 2020
  2. CIMZIA [Suspect]
     Active Substance: CERTOLIZUMAB PEGOL
     Dosage: 200 MILLIGRAM, MONTHLY (QM)
     Route: 064
     Dates: start: 2020, end: 202007

REACTIONS (2)
  - Low birth weight baby [Unknown]
  - Maternal exposure during pregnancy [Unknown]

NARRATIVE: CASE EVENT DATE: 2020
